FAERS Safety Report 16280566 (Version 2)
Quarter: 2019Q2

REPORT INFORMATION
  Report Type: Report from Study
  Country: BR (occurrence: BR)
  Receive Date: 20190507
  Receipt Date: 20190521
  Transmission Date: 20190711
  Serious: Yes (Other)
  Sender: FDA-Public Use
  Company Number: BR-ROCHE-2126124

PATIENT
  Sex: Female
  Weight: 67 kg

DRUGS (1)
  1. MABTHERA [Suspect]
     Active Substance: RITUXIMAB
     Indication: RHEUMATOID ARTHRITIS
     Dosage: THE MOST RECENT MABTHERA WAS RECEIVED ON 28/OCT/2017
     Route: 042
     Dates: start: 20171016

REACTIONS (3)
  - Cough [Recovered/Resolved]
  - Oropharyngeal discomfort [Recovered/Resolved]
  - Throat irritation [Recovered/Resolved]
